FAERS Safety Report 9499432 (Version 1)
Quarter: 2013Q1

REPORT INFORMATION
  Report Type: Spontaneous
  Country: US (occurrence: None)
  Receive Date: 20130107
  Receipt Date: 20130107
  Transmission Date: 20140127
  Serious: No
  Sender: FDA-Public Use
  Company Number: PHEH2012US017658

PATIENT
  Age: 56 Year
  Sex: Female

DRUGS (2)
  1. GILENYA (FTY) CAPSULE, 0.5MG [Suspect]
     Route: 048
  2. CENTRUM (MINERALS NOS, VITAMINS NOS) TABLET [Concomitant]

REACTIONS (4)
  - Hypoaesthesia [None]
  - Blood pressure decreased [None]
  - Pain in extremity [None]
  - Heart rate decreased [None]
